FAERS Safety Report 21324572 (Version 1)
Quarter: 2022Q3

REPORT INFORMATION
  Report Type: Report from Study
  Country: KW (occurrence: KW)
  Receive Date: 20220912
  Receipt Date: 20220912
  Transmission Date: 20221026
  Serious: Yes (Death, Hospitalization)
  Sender: FDA-Public Use
  Company Number: KW-NOVARTISPH-NVSC2022KW205525

PATIENT
  Age: 53 Year
  Sex: Female

DRUGS (1)
  1. KISQALI [Suspect]
     Active Substance: RIBOCICLIB
     Indication: Breast cancer metastatic
     Dosage: 600 MG, QD
     Route: 048
     Dates: start: 20220623

REACTIONS (3)
  - Death [Fatal]
  - Chest discomfort [Unknown]
  - Coma [Unknown]

NARRATIVE: CASE EVENT DATE: 20220701
